FAERS Safety Report 21438889 (Version 6)
Quarter: 2025Q3

REPORT INFORMATION
  Report Type: Spontaneous
  Country: US (occurrence: US)
  Receive Date: 20221011
  Receipt Date: 20250804
  Transmission Date: 20251021
  Serious: Yes (Hospitalization)
  Sender: GLAXOSMITHKLINE
  Company Number: US-GSK-US2022143847

PATIENT
  Age: 58 Year
  Sex: Female

DRUGS (6)
  1. NUCALA [Suspect]
     Active Substance: MEPOLIZUMAB
     Indication: Asthma
  2. PREDNISONE [Concomitant]
     Active Substance: PREDNISONE
     Indication: Asthma
  3. PREDNISONE [Concomitant]
     Active Substance: PREDNISONE
  4. SINGULAIR [Concomitant]
     Active Substance: MONTELUKAST SODIUM
     Indication: Asthma
     Dosage: 10 MG, QD
  5. ADVAIR HFA [Concomitant]
     Active Substance: FLUTICASONE PROPIONATE\SALMETEROL XINAFOATE
     Indication: Asthma
     Dosage: UNK, QD, 500/50
  6. BETAMETHASONE [Concomitant]
     Active Substance: BETAMETHASONE
     Indication: Sinusitis
     Dosage: 1 MG/ML, QD

REACTIONS (4)
  - Symptom recurrence [Not Recovered/Not Resolved]
  - Asthma [Not Recovered/Not Resolved]
  - Ill-defined disorder [Unknown]
  - Product dose omission issue [Unknown]

NARRATIVE: CASE EVENT DATE: 20220401
